FAERS Safety Report 9967659 (Version 2)
Quarter: 2015Q4

REPORT INFORMATION
  Report Type: Report from Study
  Country: US (occurrence: US)
  Receive Date: 20140306
  Receipt Date: 20151119
  Transmission Date: 20160305
  Serious: Yes (Other)
  Sender: FDA-Public Use
  Company Number: US-ROCHE-1339260

PATIENT
  Sex: Male

DRUGS (12)
  1. TIMOLOL. [Concomitant]
     Active Substance: TIMOLOL
     Dosage: QHS OU
     Route: 047
  2. AVASTIN [Suspect]
     Active Substance: BEVACIZUMAB
     Indication: NEOVASCULAR AGE-RELATED MACULAR DEGENERATION
     Dosage: OS BID
     Route: 047
     Dates: start: 20110520
  3. PRED FORTE [Concomitant]
     Active Substance: PREDNISOLONE ACETATE
     Dosage: OS BID
     Route: 047
  4. TIMOLOL. [Concomitant]
     Active Substance: TIMOLOL
     Dosage: BID OU
     Route: 047
  5. LUTEIN [Concomitant]
     Active Substance: LUTEIN
     Route: 047
  6. LUCENTIS [Suspect]
     Active Substance: RANIBIZUMAB
     Indication: NEOVASCULAR AGE-RELATED MACULAR DEGENERATION
  7. LOTEMAX [Concomitant]
     Active Substance: LOTEPREDNOL ETABONATE
     Dosage: BID OU
     Route: 047
  8. BLUE CAP [Concomitant]
     Dosage: OS BID
     Route: 047
  9. AVASTIN [Suspect]
     Active Substance: BEVACIZUMAB
     Indication: NEOVASCULAR AGE-RELATED MACULAR DEGENERATION
  10. LUCENTIS [Suspect]
     Active Substance: RANIBIZUMAB
     Indication: NEOVASCULAR AGE-RELATED MACULAR DEGENERATION
     Route: 050
  11. BETADINE [Concomitant]
     Active Substance: POVIDONE-IODINE
     Route: 047
  12. NEOPOLYDEX [Concomitant]
     Route: 047

REACTIONS (8)
  - Visual acuity reduced transiently [Unknown]
  - Visual acuity reduced [Unknown]
  - Visual impairment [Unknown]
  - Dry eye [Unknown]
  - Eye disorder [Unknown]
  - Eye irritation [Unknown]
  - Photophobia [Unknown]
  - Incorrect dose administered [Unknown]
